FAERS Safety Report 5119516-8 (Version None)
Quarter: 2006Q4

REPORT INFORMATION
  Report Type: 
  Country: None (occurrence: None)
  Receive Date: 20061003
  Receipt Date: 20060913
  Transmission Date: 20070319
  Serious: Yes (Hospitalization)
  Sender: FDA-Public Use
  Company Number: SE-BRISTOL-MYERS SQUIBB COMPANY-13510185

PATIENT
  Age: 85 Year
  Sex: Female

DRUGS (5)
  1. COAPROVEL FILM-COATED TABS [Suspect]
     Dates: end: 20050805
  2. KALCIPOS [Concomitant]
  3. PRAVACOL TABS [Concomitant]
  4. TROMBYL [Concomitant]
  5. LOSEC [Concomitant]

REACTIONS (3)
  - FALL [None]
  - FEMUR FRACTURE [None]
  - HYPONATRAEMIA [None]
